FAERS Safety Report 19557951 (Version 1)
Quarter: 2021Q3

REPORT INFORMATION
  Report Type: Spontaneous
  Country: FR (occurrence: FR)
  Receive Date: 20210715
  Receipt Date: 20210715
  Transmission Date: 20211014
  Serious: Yes (Hospitalization)
  Sender: FDA-Public Use
  Company Number: FR-ADIENNEP-2021AD000407

PATIENT
  Age: 67 Year
  Sex: Male
  Weight: 173 kg

DRUGS (12)
  1. BUSILVEX 6 MG/ML, SOLUTION A DILUER POUR PERFUSION [Suspect]
     Active Substance: BUSULFAN
     Indication: STEM CELL TRANSPLANT
     Route: 042
     Dates: start: 20210615, end: 20210616
  2. PRAZEPAM [Concomitant]
     Active Substance: PRAZEPAM
     Indication: ANXIETY
     Dosage: 10MG 0.5?0.5?1
     Route: 048
  3. ICLUSIG 30 MG, COMPRIME PELLICULE [Concomitant]
     Indication: PHILADELPHIA POSITIVE CHRONIC MYELOID LEUKAEMIA
     Route: 048
     Dates: start: 20200820, end: 20201114
  4. VENTOLINE 100 MICROGRAMMES PAR DOSE, SUSPENSION POUR INHALATION EN ... [Concomitant]
     Indication: CHRONIC OBSTRUCTIVE PULMONARY DISEASE
     Dosage: AS NECESSARY?               ??????
     Route: 055
     Dates: start: 202012
  5. PRAVASTATINE SODIQUE [Concomitant]
     Active Substance: PRAVASTATIN SODIUM
     Indication: HYPERCHOLESTEROLAEMIA
     Dosage: 20MG 0?0?1
     Route: 048
     Dates: start: 202012
  6. TEPADINA [Suspect]
     Active Substance: THIOTEPA
     Indication: STEM CELL TRANSPLANT
     Route: 042
     Dates: start: 20210612, end: 20210612
  7. ENDOXAN 1000 MG, LYOPHILISAT POUR SOLUTION INJECTABLE [Suspect]
     Active Substance: CYCLOPHOSPHAMIDE
     Indication: STEM CELL TRANSPLANT
     Route: 042
     Dates: start: 20210621, end: 20210622
  8. KARDEGIC [Concomitant]
     Active Substance: ASPIRIN DL-LYSINE
     Indication: CARDIOVASCULAR EVENT PROPHYLAXIS
     Route: 048
     Dates: start: 202012
  9. UROMITEXAN [Concomitant]
     Active Substance: MESNA
     Indication: CHEMOTHERAPY UROTHELIAL TOXICITY ATTENUATION
     Route: 042
     Dates: start: 20210621, end: 20210622
  10. FLUDARABINE TEVA [Suspect]
     Active Substance: FLUDARABINE PHOSPHATE
     Indication: STEM CELL TRANSPLANT
     Route: 042
     Dates: start: 20210613, end: 20210616
  11. DELURSAN 250 MG, COMPRIME PELLICULE [Concomitant]
     Active Substance: URSODIOL
     Indication: CHOLESTASIS
     Dosage: 250MG 1?1?1
     Route: 048
  12. ONBREZ BREEZHALER 150 MICROGRAMMES, POUDRE POUR INHALATION EN GELULE [Concomitant]
     Indication: CHRONIC OBSTRUCTIVE PULMONARY DISEASE
     Dosage: 0?0?1
     Route: 055

REACTIONS (2)
  - Haematuria [Recovering/Resolving]
  - Polyomavirus-associated nephropathy [Recovering/Resolving]

NARRATIVE: CASE EVENT DATE: 20210624
